FAERS Safety Report 9818483 (Version 1)
Quarter: 2014Q1

REPORT INFORMATION
  Report Type: Spontaneous
  Country: US (occurrence: US)
  Receive Date: 20140115
  Receipt Date: 20140115
  Transmission Date: 20141002
  Serious: No
  Sender: FDA-Public Use
  Company Number: US-PFIZER INC-2014011583

PATIENT
  Sex: 0

DRUGS (1)
  1. CHANTIX [Suspect]
     Indication: SMOKING CESSATION THERAPY
     Dosage: UNK

REACTIONS (6)
  - Depressed mood [Unknown]
  - Mood altered [Unknown]
  - Anger [Unknown]
  - Feeling abnormal [Unknown]
  - Nausea [Unknown]
  - Tobacco withdrawal symptoms [Unknown]
